FAERS Safety Report 6531325-1 (Version None)
Quarter: 2010Q1

REPORT INFORMATION
  Report Type: 
  Country: None (occurrence: None)
  Receive Date: 20100108
  Receipt Date: 20090928
  Transmission Date: 20100710
  Serious: No
  Sender: FDA-Public Use
  Company Number: A0800942A

PATIENT
  Age: 83 Year
  Sex: Female
  Weight: 68 kg

DRUGS (7)
  1. TYKERB [Suspect]
     Indication: BREAST CANCER
     Dosage: 5TAB PER DAY
     Route: 048
     Dates: start: 20090803
  2. XELODA [Concomitant]
     Indication: BREAST CANCER
     Dosage: 1000MG TWICE PER DAY
     Route: 048
     Dates: start: 20090622
  3. POTASSIUM [Concomitant]
  4. BENAZEPRIL HYDROCHLORIDE [Concomitant]
  5. COUMADIN [Concomitant]
  6. DEMADEX [Concomitant]
  7. UNSPECIFIED MEDICATION [Concomitant]

REACTIONS (2)
  - DIARRHOEA [None]
  - NAUSEA [None]
